FAERS Safety Report 4897929-7 (Version None)
Quarter: 2006Q1

REPORT INFORMATION
  Report Type: 
  Country: None (occurrence: None)
  Receive Date: 20060201
  Receipt Date: 20050504
  Transmission Date: 20060701
  Serious: Yes (Hospitalization)
  Sender: FDA-Public Use
  Company Number: US-MERCK-0505USA00588

PATIENT
  Age: 67 Year
  Sex: Male
  Weight: 109 kg

DRUGS (2)
  1. VIOXX [Suspect]
     Indication: ARTHRALGIA
     Route: 048
     Dates: start: 20010125, end: 20010921
  2. VIOXX [Suspect]
     Route: 048
     Dates: start: 20010125, end: 20010921

REACTIONS (43)
  - ACUTE MYOCARDIAL INFARCTION [None]
  - ANGINA PECTORIS [None]
  - ANGINA UNSTABLE [None]
  - ARTERIOSCLEROSIS CORONARY ARTERY [None]
  - ARTHROPATHY [None]
  - ATRIAL FIBRILLATION [None]
  - BACK PAIN [None]
  - CEREBROVASCULAR ACCIDENT [None]
  - CHEST DISCOMFORT [None]
  - CHEST PAIN [None]
  - CORONARY ARTERY DISEASE [None]
  - CORONARY ARTERY OCCLUSION [None]
  - CORONARY ARTERY STENOSIS [None]
  - CORONARY ARTERY THROMBOSIS [None]
  - DIARRHOEA [None]
  - DYSPEPSIA [None]
  - DYSPHAGIA [None]
  - ELECTROCARDIOGRAM T WAVE INVERSION [None]
  - EMBOLISM [None]
  - FATIGUE [None]
  - FLATULENCE [None]
  - GALLBLADDER DISORDER [None]
  - HAEMATURIA [None]
  - HEART RATE INCREASED [None]
  - HYPERHIDROSIS [None]
  - INJURY [None]
  - KNEE ARTHROPLASTY [None]
  - MYOCARDIAL INFARCTION [None]
  - NAUSEA [None]
  - ODYNOPHAGIA [None]
  - OESOPHAGEAL DISCOMFORT [None]
  - ORGAN FAILURE [None]
  - PHARYNGOLARYNGEAL PAIN [None]
  - PULMONARY EMBOLISM [None]
  - SENSATION OF HEAVINESS [None]
  - SINUS BRADYCARDIA [None]
  - STRESS [None]
  - THROAT IRRITATION [None]
  - THROMBOSIS [None]
  - VENTRICULAR EXTRASYSTOLES [None]
  - VENTRICULAR FIBRILLATION [None]
  - VENTRICULAR HYPOKINESIA [None]
  - VOMITING [None]
